FAERS Safety Report 21301317 (Version 1)
Quarter: 2022Q3

REPORT INFORMATION
  Report Type: Spontaneous
  Country: US (occurrence: None)
  Receive Date: 20220907
  Receipt Date: 20220907
  Transmission Date: 20221026
  Serious: No
  Sender: FDA-Public Use
  Company Number: US-VistaPharm, Inc.-VER202203-000239

PATIENT
  Age: 66 Year
  Sex: Female
  Weight: 60.328 kg

DRUGS (1)
  1. OXYCODONE HYDROCHLORIDE [Suspect]
     Active Substance: OXYCODONE HYDROCHLORIDE
     Indication: Pain
     Dosage: 1 ML OF 100 MG/5 ML
     Route: 048

REACTIONS (6)
  - Chills [Recovered/Resolved]
  - Withdrawal syndrome [Recovered/Resolved]
  - Product taste abnormal [Unknown]
  - Product contamination physical [Unknown]
  - Product colour issue [Unknown]
  - Product packaging issue [Unknown]
